FAERS Safety Report 15783468 (Version 4)
Quarter: 2019Q1

REPORT INFORMATION
  Report Type: Spontaneous
  Country: BR (occurrence: BR)
  Receive Date: 20190102
  Receipt Date: 20190306
  Transmission Date: 20190417
  Serious: Yes (Life-Threatening, Hospitalization)
  Sender: FDA-Public Use
  Company Number: BR-SA-2018SA397701

PATIENT
  Sex: Male
  Weight: 100 kg

DRUGS (1)
  1. MYOZYME [Suspect]
     Active Substance: ALGLUCOSIDASE ALFA
     Indication: GLYCOGEN STORAGE DISEASE TYPE II
     Dosage: UNK, UNK
     Route: 041
     Dates: start: 20181128

REACTIONS (5)
  - Condition aggravated [Recovering/Resolving]
  - Generalised oedema [Recovering/Resolving]
  - Oedema peripheral [Recovering/Resolving]
  - Condition aggravated [Recovering/Resolving]
  - Blood gases abnormal [Recovering/Resolving]

NARRATIVE: CASE EVENT DATE: 20181201
